FAERS Safety Report 5574633-3 (Version None)
Quarter: 2007Q4

REPORT INFORMATION
  Report Type: 
  Country: None (occurrence: None)
  Receive Date: 20071227
  Receipt Date: 20071217
  Transmission Date: 20080405
  Serious: Yes (Hospitalization)
  Sender: FDA-Public Use
  Company Number: IE-WYE-G00604707

PATIENT
  Age: 44 Year
  Sex: Female

DRUGS (4)
  1. EFFEXOR XR [Suspect]
     Dosage: 225MG DAILY
  2. EFFEXOR XR [Suspect]
     Dosage: UNKNOWN
     Dates: end: 20071027
  3. EFFEXOR [Suspect]
     Dosage: UNKNOWN
  4. EFFEXOR [Suspect]

REACTIONS (17)
  - AGITATION [None]
  - ANOREXIA [None]
  - BLOOD PRESSURE INCREASED [None]
  - CHILLS [None]
  - DRUG INEFFECTIVE [None]
  - DRUG WITHDRAWAL SYNDROME [None]
  - FEELING ABNORMAL [None]
  - HEADACHE [None]
  - HYPERSENSITIVITY [None]
  - INAPPROPRIATE SCHEDULE OF DRUG ADMINISTRATION [None]
  - INSOMNIA [None]
  - NAUSEA [None]
  - PARAESTHESIA [None]
  - RASH [None]
  - TACHYCARDIA [None]
  - VOMITING [None]
  - WEIGHT DECREASED [None]
